FAERS Safety Report 20905117 (Version 2)
Quarter: 2022Q2

REPORT INFORMATION
  Report Type: Spontaneous
  Country: CZ (occurrence: CZ)
  Receive Date: 20220602
  Receipt Date: 20220622
  Transmission Date: 20220721
  Serious: Yes (Life-Threatening, Hospitalization, Disabling, Other)
  Sender: FDA-Public Use
  Company Number: CZ-AstraZeneca-2022A015221

PATIENT
  Age: 76 Year
  Sex: Male

DRUGS (21)
  1. GRANISETRON [Suspect]
     Active Substance: GRANISETRON
     Indication: Antiemetic supportive care
     Dosage: 1 MILLIGRAM,1 MG, PATIENT WAS INSTRUCTED TO USE ONLY AT CONSTIPATION
     Route: 048
     Dates: start: 20220105
  2. DURVALUMAB [Concomitant]
     Active Substance: DURVALUMAB
     Indication: Small cell lung cancer extensive stage
     Dosage: 1500 MILLIGRAM, Q3W
     Route: 042
     Dates: start: 20220105, end: 20220105
  3. DURVALUMAB [Concomitant]
     Active Substance: DURVALUMAB
     Dosage: 1500 MILLIGRAM, Q3W
     Route: 042
     Dates: start: 20211215, end: 20211215
  4. DURVALUMAB [Concomitant]
     Active Substance: DURVALUMAB
     Dosage: 1500 MILLIGRAM, Q3W
     Route: 042
     Dates: start: 20220330, end: 20220330
  5. DURVALUMAB [Concomitant]
     Active Substance: DURVALUMAB
     Dosage: 1500 MILLIGRAM, Q3W
     Route: 042
     Dates: start: 20220216, end: 20220216
  6. DURVALUMAB [Concomitant]
     Active Substance: DURVALUMAB
     Dosage: 1500 MILLIGRAM, Q3W
     Route: 042
     Dates: start: 20220309, end: 20220309
  7. DURVALUMAB [Concomitant]
     Active Substance: DURVALUMAB
     Dosage: 1500 MILLIGRAM, Q3W
     Route: 042
     Dates: start: 20220427, end: 20220427
  8. INDAPAMIDE [Concomitant]
     Active Substance: INDAPAMIDE
     Indication: Hypertension
     Dosage: 1 MILLIGRAM, QD
     Route: 048
     Dates: start: 201808
  9. Vigantol [Concomitant]
     Indication: Prophylaxis
     Dosage: 20 GTT DROPS, QW
     Route: 048
     Dates: start: 201708
  10. GRANISETRON [Concomitant]
     Active Substance: GRANISETRON
     Indication: Antiemetic supportive care
     Dosage: 3 MILLIGRAM
     Route: 042
     Dates: start: 20211215
  11. FLUTICASONE FUROATE\VILANTEROL TRIFENATATE [Concomitant]
     Active Substance: FLUTICASONE FUROATE\VILANTEROL TRIFENATATE
     Indication: Asthma
     Dosage: UNK UNK, QD (DAILY)
     Route: 055
     Dates: start: 201010
  12. ETOPOSIDE [Concomitant]
     Active Substance: ETOPOSIDE
     Indication: Small cell lung cancer extensive stage
     Dosage: UNK
     Dates: start: 20211216, end: 20211217
  13. ETOPOSIDE [Concomitant]
     Active Substance: ETOPOSIDE
     Dosage: UNK
     Dates: start: 20220106, end: 20220106
  14. CARBOPLATIN [Concomitant]
     Active Substance: CARBOPLATIN
     Indication: Small cell lung cancer extensive stage
     Dosage: UNK
     Dates: start: 20211216, end: 20211217
  15. CARBOPLATIN [Concomitant]
     Active Substance: CARBOPLATIN
     Dosage: UNK
     Dates: start: 20220106, end: 20220106
  16. CARBOPLATIN [Concomitant]
     Active Substance: CARBOPLATIN
     Dosage: UNK
     Dates: start: 20220105, end: 20220106
  17. CARBOPLATIN [Concomitant]
     Active Substance: CARBOPLATIN
     Dosage: UNK
     Dates: start: 20220309, end: 20220311
  18. CARBOPLATIN [Concomitant]
     Active Substance: CARBOPLATIN
     Dosage: UNK
     Dates: start: 20211215, end: 20211217
  19. DESLORATADINE [Concomitant]
     Active Substance: DESLORATADINE
     Indication: Asthma
     Dosage: UNK UNK, QD (DAILY)
     Route: 055
     Dates: start: 201011
  20. TELMISARTAN [Concomitant]
     Active Substance: TELMISARTAN
     Indication: Hypertension
     Dosage: 80 MILLIGRAM, QD
     Route: 048
     Dates: start: 201808
  21. FILGRASTIM [Concomitant]
     Active Substance: FILGRASTIM
     Indication: Neutropenia
     Dosage: 1 MILLILITER, QD
     Route: 058
     Dates: start: 20220103, end: 20220104

REACTIONS (2)
  - Duodenal ulcer perforation [Recovered/Resolved]
  - Constipation [Recovered/Resolved]

NARRATIVE: CASE EVENT DATE: 20220107
